FAERS Safety Report 9397092 (Version 2)
Quarter: 2013Q3

REPORT INFORMATION
  Report Type: Spontaneous
  Country: US (occurrence: US)
  Receive Date: 20130712
  Receipt Date: 20130808
  Transmission Date: 20140515
  Serious: Yes (Other)
  Sender: FDA-Public Use
  Company Number: US-PFIZER INC-2013204135

PATIENT
  Age: 54 Year
  Sex: Female
  Weight: 73.92 kg

DRUGS (7)
  1. LYRICA [Suspect]
     Indication: FIBROMYALGIA
     Dosage: 75 MG, 3X/DAY
     Route: 048
     Dates: start: 201303, end: 2013
  2. DIOVAN HCT [Concomitant]
     Indication: HYPERTENSION
     Dosage: 150/12.5 MG, UNK
  3. CYCLOBENZAPRINE [Concomitant]
     Dosage: 10 MG, UNK
  4. TRAMADOL HCL [Concomitant]
     Dosage: 50 MG, UNK
  5. VENTOLIN [Concomitant]
     Dosage: UNK
  6. SYMBICORT [Concomitant]
     Dosage: UNK
  7. HUMALOG [Concomitant]
     Indication: DIABETES MELLITUS
     Dosage: UNK, 1X/DAY (IN MORNING)

REACTIONS (4)
  - Blood glucose increased [Unknown]
  - Blood pressure abnormal [Unknown]
  - Drug ineffective [Unknown]
  - Pain [Unknown]
